FAERS Safety Report 16009027 (Version 1)
Quarter: 2019Q1

REPORT INFORMATION
  Report Type: Report from Study
  Country: US (occurrence: US)
  Receive Date: 20190226
  Receipt Date: 20190226
  Transmission Date: 20190418
  Serious: No
  Sender: FDA-Public Use
  Company Number: PHEH2019US008310

PATIENT
  Age: 59 Year
  Sex: Female

DRUGS (1)
  1. ENTRESTO [Suspect]
     Active Substance: SACUBITRIL\VALSARTAN
     Indication: CARDIAC FAILURE CONGESTIVE
     Dosage: 100 MG (SACUBITRIL 49 MG/ VALSARTAN 51 MG), BID
     Route: 048
     Dates: start: 201901

REACTIONS (3)
  - Nasopharyngitis [Unknown]
  - Rhinorrhoea [Unknown]
  - Nasal congestion [Unknown]

NARRATIVE: CASE EVENT DATE: 20190215
